FAERS Safety Report 5101608-0 (Version None)
Quarter: 2006Q3

REPORT INFORMATION
  Report Type: 
  Country: None (occurrence: None)
  Receive Date: 20060731
  Receipt Date: 20060622
  Transmission Date: 20061208
  Serious: No
  Sender: FDA-Public Use
  Company Number: 2006PV016237

PATIENT
  Age: 64 Year
  Sex: Female
  Weight: 104.7809 kg

DRUGS (6)
  1. BYETTA [Suspect]
     Dosage: 5 MCG;BID;SC
     Route: 058
     Dates: start: 20051101, end: 20060607
  2. BYETTA [Suspect]
     Dosage: 5 MCG;BID;SC
     Route: 058
     Dates: start: 20060617
  3. METFORMIN HCL [Concomitant]
  4. AMARYL [Concomitant]
  5. ACTOS [Concomitant]
  6. HUMALOG OR NOVOLOG [Concomitant]

REACTIONS (5)
  - BLOOD GLUCOSE DECREASED [None]
  - BLOOD GLUCOSE INCREASED [None]
  - DIZZINESS [None]
  - NAUSEA [None]
  - VOMITING [None]
